FAERS Safety Report 9329175 (Version 1)
Quarter: 2013Q2

REPORT INFORMATION
  Report Type: Spontaneous
  Country: US (occurrence: US)
  Receive Date: 20130604
  Receipt Date: 20130604
  Transmission Date: 20140414
  Serious: No
  Sender: FDA-Public Use
  Company Number: US-SANOFI-AVENTIS-2012SA078255

PATIENT
  Age: 55 Year
  Sex: Female
  Weight: 69 kg

DRUGS (11)
  1. LANTUS [Suspect]
     Indication: DIABETES MELLITUS
     Dosage: 9 TO 23 UNITS
     Route: 058
     Dates: end: 2012
  2. LANTUS [Suspect]
     Indication: DIABETES MELLITUS
     Dosage: 9 TO 23 UNITS
     Route: 058
     Dates: end: 2012
  3. LANTUS [Suspect]
     Indication: DIABETES MELLITUS
     Dosage: 9 TO 23 UNITS
     Route: 058
     Dates: end: 2012
  4. MELOXICAM [Concomitant]
     Indication: FIBROMYALGIA
     Dates: start: 2011
  5. TRAMADOL [Concomitant]
     Indication: PAIN
  6. CLONAZEPAM [Concomitant]
     Indication: ANXIETY
  7. BACLOFEN [Concomitant]
  8. CALCIUM/VITAMIN D [Concomitant]
  9. PENICILLIN NOS [Concomitant]
     Indication: OROPHARYNGEAL PAIN
  10. WELLBUTRIN [Concomitant]
     Indication: DEPRESSION
  11. CYMBALTA [Concomitant]
     Indication: DEPRESSION
     Dates: end: 201203

REACTIONS (4)
  - Hyperhidrosis [Not Recovered/Not Resolved]
  - Chest pain [Unknown]
  - Urine odour abnormal [Unknown]
  - Injection site pain [Unknown]
